FAERS Safety Report 5729914-7 (Version None)
Quarter: 2008Q2

REPORT INFORMATION
  Report Type: 
  Country: None (occurrence: None)
  Receive Date: 20080502
  Receipt Date: 20080422
  Transmission Date: 20081010
  Serious: Yes (Hospitalization)
  Sender: FDA-Public Use
  Company Number: 2008-01969

PATIENT
  Age: 76 Year
  Sex: Male
  Weight: 88.4 kg

DRUGS (4)
  1. PREDNISONE TAB [Suspect]
     Indication: DRUG USE FOR UNKNOWN INDICATION
     Dosage: ORAL
     Route: 048
     Dates: start: 20080131
  2. DOCETAXEL [Suspect]
     Indication: PROSTATE CANCER METASTATIC
     Dosage: 150 MG, Q 3 WEEKS, INTRAVENOUS; 150 MG, Q 3 WEEKS, INTRAVENOUS
     Route: 042
     Dates: start: 20080109, end: 20080109
  3. DOCETAXEL [Suspect]
     Indication: PROSTATE CANCER METASTATIC
     Dosage: 150 MG, Q 3 WEEKS, INTRAVENOUS; 150 MG, Q 3 WEEKS, INTRAVENOUS
     Route: 042
     Dates: start: 20080130, end: 20080130
  4. DEXAMETHASONE TAB [Suspect]
     Indication: PREMEDICATION
     Dosage: 20 MG, ^CYC^,

REACTIONS (6)
  - BLOOD PRESSURE SYSTOLIC DECREASED [None]
  - BRONCHOSPASM [None]
  - CHEST DISCOMFORT [None]
  - HEART RATE DECREASED [None]
  - HYPERHIDROSIS [None]
  - UNRESPONSIVE TO STIMULI [None]
